FAERS Safety Report 20884229 (Version 5)
Quarter: 2022Q3

REPORT INFORMATION
  Report Type: Spontaneous
  Country: US (occurrence: US)
  Receive Date: 20220527
  Receipt Date: 20220809
  Transmission Date: 20221027
  Serious: Yes (Hospitalization, Other)
  Sender: FDA-Public Use
  Company Number: US-PFIZER INC-202200748733

PATIENT
  Age: 64 Year
  Sex: Female
  Weight: 72.57 kg

DRUGS (3)
  1. PAXLOVID [Suspect]
     Active Substance: NIRMATRELVIR\RITONAVIR
     Indication: COVID-19 treatment
     Dosage: PF-07321332 300 MG]/[RITONAVIR 100 MG]; 2X/DAY
     Dates: start: 20220519
  2. DICYCLOMINE [Concomitant]
     Active Substance: DICYCLOMINE HYDROCHLORIDE
     Indication: Irritable bowel syndrome
  3. SUMATRIPTAN SUCCINATE [Concomitant]
     Active Substance: SUMATRIPTAN SUCCINATE
     Indication: Migraine
     Dosage: 100 MG

REACTIONS (16)
  - Dysgeusia [Recovered/Resolved]
  - Product taste abnormal [Recovered/Resolved]
  - Frequent bowel movements [Recovered/Resolved]
  - Chest pain [Recovered/Resolved]
  - Gastrooesophageal reflux disease [Recovered/Resolved]
  - Palpitations [Recovered/Resolved]
  - Nervousness [Recovered/Resolved]
  - Fatigue [Recovered/Resolved]
  - Somnolence [Recovered/Resolved]
  - Discomfort [Recovered/Resolved]
  - Drug ineffective [Recovered/Resolved]
  - Swelling face [Recovering/Resolving]
  - Nasal oedema [Recovering/Resolving]
  - Lip swelling [Recovering/Resolving]
  - Throat tightness [Unknown]
  - Drug hypersensitivity [Unknown]

NARRATIVE: CASE EVENT DATE: 20220101
